FAERS Safety Report 8545218-1 (Version None)
Quarter: 2012Q3

REPORT INFORMATION
  Report Type: 
  Country: None (occurrence: None)
  Receive Date: 20120727
  Receipt Date: 20120628
  Transmission Date: 20120928
  Serious: Yes (Death)
  Sender: FDA-Public Use
  Company Number: US-009507513-2012SP036144

PATIENT

DRUGS (6)
  1. GINKGO [Concomitant]
     Indication: PRODUCT USED FOR UNKNOWN INDICATION
     Dosage: UNK, UNKNOWN
  2. CLARITIN [Suspect]
     Indication: EYE PRURITUS
  3. CLARITIN [Suspect]
     Indication: HYPERSENSITIVITY
  4. MULTI-VITAMINS [Concomitant]
     Indication: PRODUCT USED FOR UNKNOWN INDICATION
     Dosage: UNK, UNKNOWN
  5. OMEGA-3 MARINE TRIGLYCERIDES [Concomitant]
     Indication: PRODUCT USED FOR UNKNOWN INDICATION
     Dosage: 1000 MG, BID
  6. CLARITIN [Suspect]
     Indication: SNEEZING
     Dosage: 10 MG, QD
     Route: 048
     Dates: start: 20120507, end: 20120510

REACTIONS (1)
  - NO THERAPEUTIC RESPONSE [None]
